FAERS Safety Report 4294567-4 (Version None)
Quarter: 2004Q1

REPORT INFORMATION
  Report Type: 
  Country: None (occurrence: None)
  Receive Date: 20040211
  Receipt Date: 20040204
  Transmission Date: 20041129
  Serious: Yes (Death, Hospitalization)
  Sender: FDA-Public Use
  Company Number: 2003-10-3126

PATIENT
  Age: 64 Year
  Sex: Male
  Weight: 73.9363 kg

DRUGS (1)
  1. ALBUTEROL [Suspect]
     Indication: BRONCHOSPASM
     Dosage: 4 ATC QD; ORAL AER INH
     Route: 055

REACTIONS (3)
  - LUNG INFECTION [None]
  - PNEUMONIA [None]
  - RESPIRATORY FAILURE [None]
